FAERS Safety Report 23952498 (Version 1)
Quarter: 2024Q2

REPORT INFORMATION
  Report Type: Spontaneous
  Country: CA (occurrence: CA)
  Receive Date: 20240607
  Receipt Date: 20240607
  Transmission Date: 20240715
  Serious: Yes (Life-Threatening, Hospitalization)
  Sender: FDA-Public Use
  Company Number: CA-TEVA-VS-3205903

PATIENT
  Age: 8 Year
  Sex: Male
  Weight: 22 kg

DRUGS (8)
  1. MIRTAZAPINE [Suspect]
     Active Substance: MIRTAZAPINE
     Indication: Sleep disorder
     Route: 048
  2. ARIPIPRAZOLE [Suspect]
     Active Substance: ARIPIPRAZOLE
     Indication: Behaviour disorder
     Route: 048
  3. CEFOTAXIME [Concomitant]
     Active Substance: CEFOTAXIME SODIUM
     Indication: Product used for unknown indication
     Route: 065
  4. FAMOTIDINE [Concomitant]
     Active Substance: FAMOTIDINE
     Indication: Product used for unknown indication
     Route: 065
  5. PHYTONADIONE [Concomitant]
     Active Substance: PHYTONADIONE
     Indication: Product used for unknown indication
     Route: 065
  6. VANCOMYCIN [Concomitant]
     Active Substance: VANCOMYCIN
     Indication: Product used for unknown indication
     Route: 065
  7. ACETAMINOPHEN [Concomitant]
     Active Substance: ACETAMINOPHEN
     Indication: Product used for unknown indication
     Route: 065
  8. GABAPENTIN [Concomitant]
     Active Substance: GABAPENTIN
     Indication: Product used for unknown indication
     Route: 065

REACTIONS (15)
  - Acute kidney injury [Unknown]
  - Tachycardia [Unknown]
  - Vomiting [Unknown]
  - Somnolence [Unknown]
  - Serotonin syndrome [Unknown]
  - Pyrexia [Unknown]
  - Neuroleptic malignant syndrome [Unknown]
  - Muscle rigidity [Unknown]
  - Intensive care [Unknown]
  - Hypertension [Unknown]
  - Hyperreflexia [Unknown]
  - Hyperhidrosis [Unknown]
  - Clonus [Unknown]
  - Blood creatine phosphokinase increased [Unknown]
  - Agitation [Unknown]
